FAERS Safety Report 14638809 (Version 1)
Quarter: 2018Q1

REPORT INFORMATION
  Report Type: Report from Study
  Country: None (occurrence: FR)
  Receive Date: 20180315
  Receipt Date: 20180315
  Transmission Date: 20180509
  Serious: Yes (Other)
  Sender: FDA-Public Use
  Company Number: FR-ABBVIE-18K-056-2288968-00

PATIENT
  Age: 39 Year
  Sex: Female
  Weight: 48 kg

DRUGS (3)
  1. HUMIRA [Suspect]
     Active Substance: ADALIMUMAB
     Dosage: AT WEEK 2
     Route: 058
  2. HUMIRA [Suspect]
     Active Substance: ADALIMUMAB
     Indication: COLITIS ULCERATIVE
     Route: 058
     Dates: start: 201712, end: 201712
  3. HUMIRA [Suspect]
     Active Substance: ADALIMUMAB
     Route: 058
     Dates: end: 201801

REACTIONS (1)
  - Venous thrombosis limb [Recovered/Resolved]

NARRATIVE: CASE EVENT DATE: 201801
